FAERS Safety Report 4763204-4 (Version None)
Quarter: 2005Q3

REPORT INFORMATION
  Report Type: 
  Country: None (occurrence: None)
  Receive Date: 20050908
  Receipt Date: 20050825
  Transmission Date: 20060218
  Serious: Yes (Life-Threatening, Other)
  Sender: FDA-Public Use
  Company Number: PHBS2005JP12486

PATIENT
  Age: 77 Year
  Sex: Male
  Weight: 55 kg

DRUGS (5)
  1. VOLTAREN [Suspect]
     Indication: DYSURIA
     Dosage: 25 MG, QD
     Route: 054
     Dates: start: 20050820
  2. AMOBAN [Suspect]
     Indication: INSOMNIA
     Dosage: 5 MG, QD
     Dates: start: 20050822, end: 20050823
  3. PURSENNID [Concomitant]
     Route: 048
     Dates: start: 20050822
  4. FLUMARIN [Concomitant]
     Dosage: 2 G, UNK
     Dates: start: 20050823
  5. LACTEC [Concomitant]

REACTIONS (8)
  - ANAPHYLACTIC SHOCK [None]
  - BLOOD POTASSIUM DECREASED [None]
  - BLOOD PRESSURE DECREASED [None]
  - COLD SWEAT [None]
  - COMA [None]
  - GENERALISED ERYTHEMA [None]
  - OXYGEN SATURATION IMMEASURABLE [None]
  - VENTRICULAR EXTRASYSTOLES [None]
